FAERS Safety Report 11561746 (Version 1)
Quarter: 2015Q3

REPORT INFORMATION
  Report Type: Report from Study
  Country: SA (occurrence: SA)
  Receive Date: 20150928
  Receipt Date: 20150928
  Transmission Date: 20151125
  Serious: Yes (Hospitalization, Other)
  Sender: FDA-Public Use
  Company Number: SA-GLAXOSMITHKLINE-SA2015GSK137564

PATIENT

DRUGS (2)
  1. MELPHALAN [Suspect]
     Active Substance: MELPHALAN
     Indication: NEUROBLASTOMA
  2. BUSULPHAN [Suspect]
     Active Substance: BUSULFAN
     Indication: NEUROBLASTOMA

REACTIONS (1)
  - Cystitis haemorrhagic [Unknown]
